FAERS Safety Report 20045136 (Version 1)
Quarter: 2021Q4

REPORT INFORMATION
  Report Type: Spontaneous
  Country: CA (occurrence: CA)
  Receive Date: 20211108
  Receipt Date: 20211108
  Transmission Date: 20220303
  Serious: Yes (Life-Threatening, Hospitalization)
  Sender: FDA-Public Use
  Company Number: CA-TEVA-2021-CA-1973526

PATIENT
  Age: 65 Year
  Sex: Female

DRUGS (7)
  1. CIPROFLOXACIN [Suspect]
     Active Substance: CIPROFLOXACIN
     Dosage: 500 MILLIGRAM DAILY;
     Route: 048
  2. CLINDAMYCIN [Suspect]
     Active Substance: CLINDAMYCIN
     Dosage: 1350 MILLIGRAM DAILY;
     Route: 048
  3. AZITHROMYCIN [Concomitant]
     Active Substance: AZITHROMYCIN
  4. CEFTRIAXONE SODIUM [Concomitant]
     Active Substance: CEFTRIAXONE SODIUM
  5. ERTAPENEM [Concomitant]
     Active Substance: ERTAPENEM
  6. RISPERIDONE [Concomitant]
     Active Substance: RISPERIDONE
  7. VANCOMYCIN [Concomitant]
     Active Substance: VANCOMYCIN

REACTIONS (4)
  - Rash maculo-papular [Unknown]
  - Skin exfoliation [Unknown]
  - Stevens-Johnson syndrome [Unknown]
  - Toxic epidermal necrolysis [Unknown]
